FAERS Safety Report 4474407-0 (Version None)
Quarter: 2004Q4

REPORT INFORMATION
  Report Type: 
  Country: None (occurrence: None)
  Receive Date: 20041014
  Receipt Date: 20041007
  Transmission Date: 20050328
  Serious: Yes (Life-Threatening, Hospitalization, Disabling, Other)
  Sender: FDA-Public Use
  Company Number: CA-JNJFOC-20040908353

PATIENT
  Sex: Female

DRUGS (6)
  1. RISPERDAL [Suspect]
     Route: 049
  2. RISPERDAL [Suspect]
     Dosage: 1 MG IN THE MORNING AND 2 MG AT NIGHT
     Route: 049
  3. RISPERDAL [Suspect]
     Indication: SCHIZOPHRENIA
     Route: 049
  4. CLONAZEPAM [Concomitant]
     Indication: SCHIZOPHRENIA
  5. LOXAPINE [Concomitant]
  6. IMOVANE [Concomitant]

REACTIONS (6)
  - CEREBRAL THROMBOSIS [None]
  - HEMIPLEGIA [None]
  - INTRACRANIAL ANEURYSM [None]
  - LOSS OF CONSCIOUSNESS [None]
  - NEUROLOGIC NEGLECT SYNDROME [None]
  - SUBARACHNOID HAEMORRHAGE [None]
